FAERS Safety Report 9933465 (Version 2)
Quarter: 2014Q1

REPORT INFORMATION
  Report Type: Report from Study
  Country: US (occurrence: US)
  Receive Date: 20140228
  Receipt Date: 20140228
  Transmission Date: 20141002
  Serious: No
  Sender: FDA-Public Use
  Company Number: US-MYLANLABS-2013S1009068

PATIENT
  Age: 30 Year
  Sex: Female
  Weight: 88.45 kg

DRUGS (2)
  1. AMNESTEEM CAPSULES [Suspect]
     Indication: ACNE
     Route: 048
     Dates: start: 20130321, end: 20130423
  2. NUVARING [Concomitant]
     Indication: CONTRACEPTION

REACTIONS (5)
  - Depression [Not Recovered/Not Resolved]
  - Dry skin [Not Recovered/Not Resolved]
  - Nasal dryness [Not Recovered/Not Resolved]
  - Arthralgia [Not Recovered/Not Resolved]
  - Mood altered [Not Recovered/Not Resolved]
